FAERS Safety Report 24229455 (Version 2)
Quarter: 2024Q4

REPORT INFORMATION
  Report Type: Spontaneous
  Country: US (occurrence: US)
  Receive Date: 20240820
  Receipt Date: 20241118
  Transmission Date: 20250114
  Serious: Yes (Other)
  Sender: BAYER HEALTHCARE PHARMACEUTICALS INC.
  Company Number: US-BAYER-2024A116395

PATIENT
  Age: 31 Year
  Sex: Female

DRUGS (14)
  1. ADEMPAS [Suspect]
     Active Substance: RIOCIGUAT
     Indication: Pulmonary hypertension
  2. AMBRISENTAN [Suspect]
     Active Substance: AMBRISENTAN
     Indication: Pulmonary hypertension
  3. SELEXIPAG [Suspect]
     Active Substance: SELEXIPAG
     Indication: Pulmonary hypertension
  4. REMODULIN [Suspect]
     Active Substance: TREPROSTINIL
     Indication: Pulmonary arterial hypertension
     Dosage: UNK
  5. REMODULIN [Suspect]
     Active Substance: TREPROSTINIL
     Indication: Pulmonary arterial hypertension
     Dosage: 0.008 ?G/KG
     Route: 042
  6. TADALAFIL [Concomitant]
     Active Substance: TADALAFIL
     Dosage: 40 MG
  7. RITUXIMAB [Concomitant]
     Active Substance: RITUXIMAB
  8. NITRIC OXIDE [Concomitant]
     Active Substance: NITRIC OXIDE
  9. LIDOCAINE [Concomitant]
     Active Substance: LIDOCAINE
     Dosage: 2 %
  10. TRANEXAMIC ACID [Concomitant]
     Active Substance: TRANEXAMIC ACID
     Dosage: 1 G
  11. OXYTOCIN [Concomitant]
     Active Substance: OXYTOCIN
  12. MISOPROSTOL [Concomitant]
     Active Substance: MISOPROSTOL
     Dosage: 800 ?G
  13. CHLOROPROCAINE HCL [Concomitant]
  14. MORPHINE [Concomitant]
     Active Substance: MORPHINE
     Dosage: 3 MG

REACTIONS (7)
  - Pulmonary hypertension [None]
  - Dyspnoea exertional [None]
  - Peripheral swelling [None]
  - Nausea [None]
  - Vomiting [None]
  - Maternal exposure during pregnancy [None]
  - Contraindicated product administered [None]
